FAERS Safety Report 25524693 (Version 1)
Quarter: 2025Q3

REPORT INFORMATION
  Report Type: Spontaneous
  Country: US (occurrence: None)
  Receive Date: 20250704
  Receipt Date: 20250704
  Transmission Date: 20251020
  Serious: Yes (Hospitalization)
  Sender: FDA-CTU
  Company Number: None

PATIENT
  Sex: Male

DRUGS (8)
  1. DEFERASIROX [Suspect]
     Active Substance: DEFERASIROX
     Indication: Pyrexia
     Dosage: TAKE 4 TABLETS BY MOUTH EVERY DAY (TOTAL 1440 MG)
     Route: 048
     Dates: start: 20250530
  2. ACYCLOVIR TAB 800MG [Concomitant]
  3. MERCAPTOPUR TAB 50MG [Concomitant]
  4. ONDANSETRON [Concomitant]
     Active Substance: ONDANSETRON
  5. OXYBUTYNIN TAB 5MG ER [Concomitant]
  6. PROCHLORPER TAB 5MG [Concomitant]
  7. TAMSULOSIN CAP0.4MG [Concomitant]
  8. TYLENOL TAB 500MG [Concomitant]

REACTIONS (2)
  - Pyrexia [None]
  - Product dose omission in error [None]
